FAERS Safety Report 6647383-X (Version None)
Quarter: 2010Q1

REPORT INFORMATION
  Report Type: 
  Country: None (occurrence: None)
  Receive Date: 20100323
  Receipt Date: 20100317
  Transmission Date: 20100710
  Serious: Yes (Hospitalization, Other)
  Sender: FDA-Public Use
  Company Number: US-BAYER-201016621NA

PATIENT
  Age: 57 Year
  Sex: Female

DRUGS (2)
  1. AVELOX [Suspect]
     Indication: BRONCHITIS
     Dosage: AS USED: 400 MG  UNIT DOSE: 400 MG
     Route: 048
     Dates: start: 20100308, end: 20100311
  2. DIABETES MEDICATION [Concomitant]
     Indication: DIABETES MELLITUS

REACTIONS (9)
  - ANXIETY [None]
  - ARTHRALGIA [None]
  - BLOOD GLUCOSE INCREASED [None]
  - CHEST DISCOMFORT [None]
  - DYSPNOEA [None]
  - HYPOAESTHESIA [None]
  - MYALGIA [None]
  - NIGHTMARE [None]
  - RESTLESS LEGS SYNDROME [None]
